FAERS Safety Report 4444964-9 (Version None)
Quarter: 2004Q3

REPORT INFORMATION
  Report Type: 
  Country: None (occurrence: None)
  Receive Date: 20040903
  Receipt Date: 20040824
  Transmission Date: 20050211
  Serious: Yes (Disabling)
  Sender: FDA-Public Use
  Company Number: 2004228325GB

PATIENT
  Age: 51 Year
  Sex: Female
  Weight: 84.2 kg

DRUGS (2)
  1. GENOTROPIN [Suspect]
     Indication: HYPOPITUITARISM
     Dosage: SUBCUTANEOUS
     Route: 058
     Dates: start: 19970114
  2. VOLTAREN [Concomitant]

REACTIONS (2)
  - ARTHRALGIA [None]
  - BONE CYST [None]
